FAERS Safety Report 6634885-5 (Version None)
Quarter: 2010Q1

REPORT INFORMATION
  Report Type: 
  Country: None (occurrence: None)
  Receive Date: 20100315
  Receipt Date: 20100305
  Transmission Date: 20100710
  Serious: Yes (Life-Threatening, Hospitalization, Other)
  Sender: FDA-Public Use
  Company Number: US-PFIZER INC-2009316385

PATIENT
  Age: 31 Year
  Sex: Female
  Weight: 58.957 kg

DRUGS (2)
  1. CHANTIX [Suspect]
     Dosage: 1 MG, 2X/DAY
     Dates: start: 20090501, end: 20090630
  2. ULTRAM ER [Suspect]
     Dosage: 300 MG

REACTIONS (18)
  - ACCIDENTAL OVERDOSE [None]
  - ANTISOCIAL BEHAVIOUR [None]
  - COGNITIVE DISORDER [None]
  - CONVULSION [None]
  - DIZZINESS [None]
  - FEAR [None]
  - HAEMATEMESIS [None]
  - HEADACHE [None]
  - LOSS OF CONSCIOUSNESS [None]
  - MUSCULOSKELETAL PAIN [None]
  - NIGHTMARE [None]
  - OESOPHAGEAL RUPTURE [None]
  - PHOTOPSIA [None]
  - PUPILS UNEQUAL [None]
  - RESPIRATORY ARREST [None]
  - VASCULAR PROCEDURE COMPLICATION [None]
  - VITREOUS FLOATERS [None]
  - VOMITING [None]
